FAERS Safety Report 6316261-8 (Version None)
Quarter: 2009Q3

REPORT INFORMATION
  Report Type: 
  Country: None (occurrence: None)
  Receive Date: 20090819
  Receipt Date: 20090819
  Transmission Date: 20100115
  Serious: Yes (Death)
  Sender: FDA-Public Use
  Company Number: None

PATIENT
  Age: 74 Year
  Sex: Female
  Weight: 104.3273 kg

DRUGS (1)
  1. METHOTREXATE [Suspect]
     Dosage: 0.3CC SQ WEEKLY ON MONDAY
     Dates: start: 20050623, end: 20090623

REACTIONS (10)
  - BODY TEMPERATURE DECREASED [None]
  - DIARRHOEA [None]
  - FOOD POISONING [None]
  - GENERAL PHYSICAL HEALTH DETERIORATION [None]
  - HYPOTENSION [None]
  - IMMUNE SYSTEM DISORDER [None]
  - INFLUENZA [None]
  - RESPIRATORY FAILURE [None]
  - SEPSIS [None]
  - VOMITING [None]
